FAERS Safety Report 12429234 (Version 2)
Quarter: 2016Q2

REPORT INFORMATION
  Report Type: Spontaneous
  Country: JP (occurrence: JP)
  Receive Date: 20160602
  Receipt Date: 20160608
  Transmission Date: 20160815
  Serious: No
  Sender: FDA-Public Use
  Company Number: JP-JNJFOC-20160527117

PATIENT
  Age: 32 Year
  Sex: Female

DRUGS (9)
  1. RISPERDAL [Suspect]
     Active Substance: RISPERIDONE
     Indication: GENERALISED ANXIETY DISORDER
     Dosage: INITIATED AT 36 WEEKS AND 3 DAYS OF PREGNANCY
     Route: 048
  2. ETIZOLAM [Concomitant]
     Active Substance: ETIZOLAM
     Indication: GENERALISED ANXIETY DISORDER
     Dosage: INITIATED AT 25 WEEKS OF PREGNANCY
     Route: 048
  3. RISPERDAL [Suspect]
     Active Substance: RISPERIDONE
     Indication: SELF INJURIOUS BEHAVIOUR
     Dosage: INITIATED AT 36 WEEKS AND 3 DAYS OF PREGNANCY
     Route: 048
  4. PAROXETINE HYDROCHLORIDE. [Concomitant]
     Active Substance: PAROXETINE HYDROCHLORIDE
     Indication: GENERALISED ANXIETY DISORDER
     Dosage: SINCE BEFORE PREGNANCY
     Route: 048
  5. SODIUM VALPROATE [Concomitant]
     Active Substance: VALPROATE SODIUM
     Indication: GENERALISED ANXIETY DISORDER
     Dosage: INITIATED AT 35 WEEKS AND 5 DAYS OF PREGNANCY
     Route: 048
  6. SERTRALINE [Suspect]
     Active Substance: SERTRALINE HYDROCHLORIDE
     Indication: SELF INJURIOUS BEHAVIOUR
     Dosage: INITIATED AT 36 WEEKS AND 3 DAYS OF PREGNANCY
     Route: 065
  7. SERTRALINE [Suspect]
     Active Substance: SERTRALINE HYDROCHLORIDE
     Indication: GENERALISED ANXIETY DISORDER
     Dosage: INITIATED AT 36 WEEKS AND 3 DAYS OF PREGNANCY
     Route: 065
  8. PAROXETINE HYDROCHLORIDE. [Concomitant]
     Active Substance: PAROXETINE HYDROCHLORIDE
     Indication: GENERALISED ANXIETY DISORDER
     Dosage: DOSE WAS INCREASED AT THE INITIAL VISIT OF THE HOSPITAL AT 7 WEEKS OF PREGNANCY
     Route: 048
  9. BROMAZEPAM [Concomitant]
     Active Substance: BROMAZEPAM
     Indication: GENERALISED ANXIETY DISORDER
     Dosage: SINCE BEFORE PREGNANCY
     Route: 048

REACTIONS (3)
  - Off label use [Unknown]
  - Product use issue [Unknown]
  - Exposure during pregnancy [Unknown]
